FAERS Safety Report 17367358 (Version 3)
Quarter: 2020Q1

REPORT INFORMATION
  Report Type: Spontaneous
  Country: US (occurrence: US)
  Receive Date: 20200204
  Receipt Date: 20200310
  Transmission Date: 20200409
  Serious: Yes (Hospitalization, Other)
  Sender: FDA-Public Use
  Company Number: US-AKORN PHARMACEUTICALS-2020AKN00148

PATIENT
  Age: 18 Year
  Sex: Female
  Weight: 52.2 kg

DRUGS (10)
  1. TRETINOIN. [Concomitant]
     Active Substance: TRETINOIN
     Dosage: 1X/DAY; APPLY A SMALL AMOUNT TO FACE AT BEDTIME
  2. REFRESH CELLUVISC [Concomitant]
     Active Substance: CARBOXYMETHYLCELLULOSE SODIUM
     Dosage: UNK, 1X/DAY; 1 OR 2 DROPS TO AFFECTED EYES EVERY 24 HOURS AS NEEDED
  3. MYORISAN [Suspect]
     Active Substance: ISOTRETINOIN
     Dosage: 40 MG, 2X/DAY
     Route: 048
     Dates: start: 201911, end: 201912
  4. CLINDAMYCIN PHOSPHATE. [Concomitant]
     Active Substance: CLINDAMYCIN PHOSPHATE
     Dosage: AS NEEDED EVERY 24 HOURS
  5. MYORISAN [Suspect]
     Active Substance: ISOTRETINOIN
     Indication: ACNE
     Dosage: 40 MG, 1X/DAY
     Route: 048
     Dates: start: 20190830, end: 201911
  6. QUETIAPINE FUMARATE. [Concomitant]
     Active Substance: QUETIAPINE FUMARATE
     Dosage: 25 MG, 1X/DAY, AT BEDTIME
     Route: 048
  7. CEPHALEXIN. [Concomitant]
     Active Substance: CEPHALEXIN
     Dosage: 500 MG, 4X/DAY FOR 10 DAYS
     Route: 048
     Dates: start: 20200117
  8. GABAPENTIN. [Concomitant]
     Active Substance: GABAPENTIN
     Dosage: 100 MG, 2X/DAY
     Route: 048
  9. VITAMIN D [Concomitant]
     Active Substance: VITAMIN D NOS
     Dosage: 1 TABLETS, 2X/DAY
  10. FISH OIL [Concomitant]
     Active Substance: FISH OIL
     Dosage: 1200 MG, 1X/DAY, IN THE MORNING

REACTIONS (6)
  - Major depression [Not Recovered/Not Resolved]
  - Suicide attempt [Recovered/Resolved]
  - Anxiety [Recovering/Resolving]
  - Off label use [Recovered/Resolved]
  - Paranoia [Recovering/Resolving]
  - Suicidal ideation [Recovering/Resolving]

NARRATIVE: CASE EVENT DATE: 2019
